FAERS Safety Report 5752986-0 (Version None)
Quarter: 2008Q2

REPORT INFORMATION
  Report Type: 
  Country: None (occurrence: None)
  Receive Date: 20080527
  Receipt Date: 20080506
  Transmission Date: 20081010
  Serious: Yes (Other)
  Sender: FDA-Public Use
  Company Number: ENC200700211

PATIENT
  Age: 59 Year
  Sex: Female
  Weight: 70 kg

DRUGS (3)
  1. ARGATROBAN [Suspect]
     Indication: HEPARIN-INDUCED THROMBOCYTOPENIA
     Dosage: 2 MCG/KG/MIN,
     Dates: start: 20071119, end: 20071205
  2. DALTEPARIN SODIUM [Concomitant]
  3. TINZAPARIN [Concomitant]

REACTIONS (8)
  - ALANINE AMINOTRANSFERASE INCREASED [None]
  - ASPARTATE AMINOTRANSFERASE INCREASED [None]
  - BLOOD ALKALINE PHOSPHATASE INCREASED [None]
  - BLOOD LACTATE DEHYDROGENASE INCREASED [None]
  - EMBOLISM [None]
  - GAMMA-GLUTAMYLTRANSFERASE INCREASED [None]
  - HEPARIN-INDUCED THROMBOCYTOPENIA [None]
  - SERUM FERRITIN INCREASED [None]
